FAERS Safety Report 11428321 (Version 1)
Quarter: 2015Q3

REPORT INFORMATION
  Report Type: Spontaneous
  Country: US (occurrence: US)
  Receive Date: 20150828
  Receipt Date: 20150828
  Transmission Date: 20151125
  Serious: No
  Sender: FDA-Public Use
  Company Number: US-ROCHE-1252844

PATIENT
  Sex: Male

DRUGS (3)
  1. PEGASYS [Suspect]
     Active Substance: PEGINTERFERON ALFA-2A
     Indication: HEPATITIS C
     Route: 058
     Dates: start: 20130719
  2. RIBASPHERE RIBAPAK [Suspect]
     Active Substance: RIBAVIRIN
     Indication: CHRONIC HEPATITIS C
     Dosage: DAILY IN TWO DIVIDED DOSES
     Route: 048
     Dates: start: 20130719
  3. TELAPREVIR [Suspect]
     Active Substance: TELAPREVIR
     Indication: CHRONIC HEPATITIS C
     Route: 065
     Dates: start: 20130719

REACTIONS (9)
  - Insomnia [Unknown]
  - Pyrexia [Unknown]
  - Headache [Unknown]
  - Rash pruritic [Unknown]
  - Influenza like illness [Unknown]
  - Rash [Unknown]
  - Dehydration [Unknown]
  - Injection site reaction [Unknown]
  - Chills [Unknown]
